FAERS Safety Report 16890872 (Version 1)
Quarter: 2019Q4

REPORT INFORMATION
  Report Type: Spontaneous
  Country: US (occurrence: US)
  Receive Date: 20191007
  Receipt Date: 20191007
  Transmission Date: 20200122
  Serious: No
  Sender: FDA-Public Use
  Company Number: US-HIKMA PHARMACEUTICALS USA INC.-US-H14001-18-08224

PATIENT
  Sex: Male

DRUGS (1)
  1. TESTOSTERONE ENANTHATE. [Suspect]
     Active Substance: TESTOSTERONE ENANTHATE
     Indication: BLOOD TESTOSTERONE DECREASED
     Route: 030

REACTIONS (6)
  - Disturbance in attention [Unknown]
  - Aphasia [Unknown]
  - Dizziness [Unknown]
  - Confusional state [Unknown]
  - Fatigue [Unknown]
  - Accidental underdose [Not Recovered/Not Resolved]
